FAERS Safety Report 9052072 (Version 1)
Quarter: 2013Q1

REPORT INFORMATION
  Report Type: Spontaneous
  Country: US (occurrence: None)
  Receive Date: 20130131
  Receipt Date: 20130131
  Transmission Date: 20140127
  Serious: Yes (Hospitalization)
  Sender: FDA-Public Use
  Company Number: None

PATIENT
  Age: 77 Year
  Sex: Female
  Weight: 46.4 kg

DRUGS (14)
  1. DIGOXIN [Suspect]
     Indication: CORONARY ARTERY DISEASE
     Route: 048
  2. LISINOPRIL [Concomitant]
  3. IMDUR [Concomitant]
  4. CARAFATE [Concomitant]
  5. PREDNISONE [Concomitant]
  6. LIPITOR [Concomitant]
  7. LEVOTHYROXINE [Concomitant]
  8. RISPERIDONE [Concomitant]
  9. EXELON [Concomitant]
  10. FLUOXETINE [Concomitant]
  11. ADVAIR [Concomitant]
  12. METOPROLOL [Concomitant]
  13. DILTIAZEM [Concomitant]
  14. TYLENOL [Concomitant]

REACTIONS (7)
  - Cardioactive drug level above therapeutic [None]
  - Encephalopathy [None]
  - Acute respiratory failure [None]
  - Pulmonary oedema [None]
  - Toxicity to various agents [None]
  - Pneumonia aspiration [None]
  - Cardiac disorder [None]
